FAERS Safety Report 16039298 (Version 1)
Quarter: 2019Q1

REPORT INFORMATION
  Report Type: Report from Study
  Country: US (occurrence: US)
  Receive Date: 20190306
  Receipt Date: 20190306
  Transmission Date: 20190418
  Serious: Yes (Hospitalization, Other)
  Sender: FDA-Public Use
  Company Number: US-AMGEN-USACT2019031665

PATIENT
  Age: 40 Year
  Sex: Male

DRUGS (15)
  1. BLINATUMOMAB [Suspect]
     Active Substance: BLINATUMOMAB
     Dosage: 28 MUG, QD (CONTINUOUS INFUSION DAYS 1-29 (CYCLE 6, 11 AND 12))
     Route: 042
  2. INOTUZUMAB OZOGAMICIN [Suspect]
     Active Substance: INOTUZUMAB OZOGAMICIN
     Indication: ACUTE LYMPHOCYTIC LEUKAEMIA
     Dosage: 0.3 MG/M2, CYCLICAL (CYCLIC 1, 3 (OVER 1 HOUR ON DAY 3))
     Route: 042
     Dates: start: 20181006
  3. VINCRISTINE SULFATE. [Suspect]
     Active Substance: VINCRISTINE SULFATE
     Indication: ACUTE LYMPHOCYTIC LEUKAEMIA
     Dosage: 2 MG, CYCLICAL (CYCLIC 1, 3 (DAY 1 AND DAY 8))
     Route: 042
  4. DEXAMETHASONE. [Suspect]
     Active Substance: DEXAMETHASONE
     Indication: ACUTE LYMPHOCYTIC LEUKAEMIA
     Dosage: 20 MG, CYCLICAL (CYCLIC 1, 3 (DAILY FOR 4 DAYS ON DAYS 1-4 AND DAYS 11-14))
     Route: 042
  5. BLINATUMOMAB [Suspect]
     Active Substance: BLINATUMOMAB
     Dosage: 28 MCG, QD (CONTINUOUS INFUSION DAYS 4-29 (CYCLE 5 ONLY))
     Route: 042
  6. PEGFILGRASTIM [Suspect]
     Active Substance: PEGFILGRASTIM
     Indication: ACUTE LYMPHOCYTIC LEUKAEMIA
     Dosage: 6 MG, CYCLICAL (CYCLIC 1, 3 (ON DAY4 UNTIL RECOVERY OF GRANULOCYTE COUNT))
     Route: 058
  7. METHOTREXATE SODIUM. [Suspect]
     Active Substance: METHOTREXATE SODIUM
     Indication: ACUTE LYMPHOCYTIC LEUKAEMIA
     Dosage: 50 MG/M2, CYCLIC 2 (OVER 2HRS ON DAY 1)
     Route: 042
  8. BLINATUMOMAB [Suspect]
     Active Substance: BLINATUMOMAB
     Indication: ACUTE LYMPHOCYTIC LEUKAEMIA
     Dosage: 9 MCG, QD (CONTINUOUS INFUSION DAYS 1-4 (CYCLE 5 ONLY))
     Route: 042
  9. ARA-C [Suspect]
     Active Substance: CYTARABINE
     Indication: ACUTE LYMPHOCYTIC LEUKAEMIA
     Dosage: 0.5 G/M2, CYCLICAL (CYCLIC 2 (OVER 3 HOURS TWICE A DAY X 4 DOSES ON DAYS 2 AND 3))
     Route: 042
  10. MESNA. [Suspect]
     Active Substance: MESNA
     Indication: ACUTE LYMPHOCYTIC LEUKAEMIA
     Dosage: 300 MG/M2, CYCLICAL (CYCLIC 1, 3 (DAILY OVER 24 HOURS FOR 3 DAYS ON DAYS 1-3))
     Route: 042
  11. INOTUZUMAB OZOGAMICIN [Suspect]
     Active Substance: INOTUZUMAB OZOGAMICIN
     Dosage: 0.3 MG/M2, CYCLICAL, CYCLIC 2 (ON DAY 2 OR 3 (CYCLES 2 AND 4 ONLY))
     Route: 042
  12. METHOTREXATE SODIUM. [Suspect]
     Active Substance: METHOTREXATE SODIUM
     Dosage: 200 MG/M2, CYCLICAL (CYCLIC 2 (OVER 2HRS ON DAY 1))
     Route: 042
  13. CYCLOPHOSPHAMIDE. [Suspect]
     Active Substance: CYCLOPHOSPHAMIDE
     Indication: ACUTE LYMPHOCYTIC LEUKAEMIA
     Dosage: 150 MG/M2, CYCLICAL (CYCLIC 1, 3 (OVER 3 HOURS TWICE A DAY ON DAYS 1-3))
     Route: 042
  14. RITUXIMAB. [Suspect]
     Active Substance: RITUXIMAB
     Indication: ACUTE LYMPHOCYTIC LEUKAEMIA
     Dosage: 375 MG/M2, CYCLICAL (CYCLIC 1, 3 (ON DAY 2 AND DAY 8 (CYCLES 1 AND 3 ONLY))
     Route: 042
  15. RITUXIMAB. [Suspect]
     Active Substance: RITUXIMAB
     Dosage: 375 MG/M2, CYCLIC 2 (ON DAY 2 AND 8 OF CYCLES 2 AND 4)
     Route: 042

REACTIONS (1)
  - Pancreatitis [Recovered/Resolved]

NARRATIVE: CASE EVENT DATE: 20190113
